FAERS Safety Report 19976292 (Version 4)
Quarter: 2021Q4

REPORT INFORMATION
  Report Type: Spontaneous
  Country: CA (occurrence: CA)
  Receive Date: 20211021
  Receipt Date: 20211204
  Transmission Date: 20220303
  Serious: Yes (Other)
  Sender: FDA-Public Use
  Company Number: CA-CELLTRION INC.-2021CA014172

PATIENT

DRUGS (1)
  1. INFLIXIMAB [Suspect]
     Active Substance: INFLIXIMAB
     Indication: Rheumatoid arthritis
     Dosage: 120 MG/ML EVERY 2 WEEKS
     Route: 058
     Dates: start: 20211008

REACTIONS (6)
  - Rheumatoid arthritis [Recovering/Resolving]
  - Joint swelling [Unknown]
  - Injection site urticaria [Unknown]
  - Arthralgia [Unknown]
  - Infusion related reaction [Unknown]
  - Drug ineffective [Unknown]

NARRATIVE: CASE EVENT DATE: 20211007
